FAERS Safety Report 4815582-5 (Version None)
Quarter: 2005Q4

REPORT INFORMATION
  Report Type: 
  Country: None (occurrence: None)
  Receive Date: 20051031
  Receipt Date: 20050915
  Transmission Date: 20060501
  Serious: Yes (Other)
  Sender: FDA-Public Use
  Company Number: US-BRISTOL-MYERS SQUIBB COMPANY-13113352

PATIENT
  Age: 59 Year
  Sex: Male

DRUGS (11)
  1. ABILIFY [Suspect]
     Route: 048
  2. ZOCOR [Concomitant]
  3. TOPROL-XL [Concomitant]
  4. PRINIVIL [Concomitant]
  5. HYDROCHLOROTHIAZIDE [Concomitant]
  6. GLUCOPHAGE [Concomitant]
  7. GLUCOTROL [Concomitant]
  8. ASPIRIN [Concomitant]
  9. LEXAPRO [Concomitant]
  10. SEROQUEL [Concomitant]
  11. SEROQUEL [Concomitant]

REACTIONS (5)
  - ARRHYTHMIA [None]
  - ATRIAL FIBRILLATION [None]
  - ELECTROCARDIOGRAM QT CORRECTED INTERVAL PROLONGED [None]
  - PAIN IN EXTREMITY [None]
  - PALPITATIONS [None]
